FAERS Safety Report 10218994 (Version 1)
Quarter: 2014Q2

REPORT INFORMATION
  Report Type: Spontaneous
  Country: CL (occurrence: CL)
  Receive Date: 20140605
  Receipt Date: 20140605
  Transmission Date: 20141212
  Serious: Yes (Other)
  Sender: FDA-Public Use
  Company Number: CL-PFIZER INC-2014151410

PATIENT
  Age: 84 Year
  Sex: Female

DRUGS (3)
  1. XALATAN [Suspect]
     Indication: CORNEAL LEUKOMA
     Dosage: 1 GTT, 1X/DAY
     Route: 047
     Dates: start: 1984
  2. ACETAMINOPHEN [Concomitant]
  3. ASPIRIN ^BAYER^ [Concomitant]

REACTIONS (4)
  - Deafness [Not Recovered/Not Resolved]
  - Gait disturbance [Not Recovered/Not Resolved]
  - Fall [Unknown]
  - Off label use [Not Recovered/Not Resolved]
